FAERS Safety Report 21897249 (Version 1)
Quarter: 2023Q1

REPORT INFORMATION
  Report Type: Spontaneous
  Country: US (occurrence: None)
  Receive Date: 20230121
  Receipt Date: 20230121
  Transmission Date: 20230418
  Serious: Yes (Life-Threatening, Disabling, Other)
  Sender: FDA-Public Use
  Company Number: None

PATIENT
  Age: 42 Year
  Sex: Male
  Weight: 57.6 kg

DRUGS (2)
  1. .DELTA.9-TETRAHYDROCANNABINOL\HERBALS [Suspect]
     Active Substance: .DELTA.9-TETRAHYDROCANNABINOL\HERBALS
     Indication: Substance use
     Dosage: FREQUENCY : EVERY 4 HOURS;?
     Route: 055
  2. Cbd hemp [Concomitant]

REACTIONS (3)
  - Cardiac disorder [None]
  - Lung disorder [None]
  - Tooth disorder [None]

NARRATIVE: CASE EVENT DATE: 20221019
